FAERS Safety Report 21182827 (Version 1)
Quarter: 2022Q3

REPORT INFORMATION
  Report Type: Spontaneous
  Country: DE (occurrence: DE)
  Receive Date: 20220808
  Receipt Date: 20220808
  Transmission Date: 20221027
  Serious: Yes (Other)
  Sender: FDA-Public Use
  Company Number: DE-NOVARTISPH-NVSC2022DE177997

PATIENT
  Sex: Female

DRUGS (2)
  1. DABRAFENIB [Suspect]
     Active Substance: DABRAFENIB
     Indication: Astrocytoma
     Dosage: 60 MG (VIA TUBE)
     Route: 065
     Dates: start: 202104
  2. TRAMETINIB [Suspect]
     Active Substance: TRAMETINIB
     Indication: Astrocytoma
     Dosage: 0.5 MG
     Route: 065
     Dates: start: 202104

REACTIONS (3)
  - Renal salt-wasting syndrome [Not Recovered/Not Resolved]
  - Incorrect route of product administration [Not Recovered/Not Resolved]
  - Product use in unapproved indication [Unknown]

NARRATIVE: CASE EVENT DATE: 20210401
